FAERS Safety Report 20198869 (Version 1)
Quarter: 2021Q4

REPORT INFORMATION
  Report Type: Spontaneous
  Country: US (occurrence: US)
  Receive Date: 20211217
  Receipt Date: 20211217
  Transmission Date: 20220303
  Serious: Yes (Other)
  Sender: FDA-Public Use
  Company Number: US-PFIZER INC-202101763052

PATIENT
  Age: 82 Year
  Sex: Male

DRUGS (1)
  1. VYNDAMAX [Suspect]
     Active Substance: TAFAMIDIS
     Dosage: 61 MG

REACTIONS (5)
  - Ventricular tachycardia [Unknown]
  - Atrial fibrillation [Unknown]
  - Palpitations [Unknown]
  - Cardiac septal hypertrophy [Unknown]
  - Ejection fraction decreased [Unknown]
